FAERS Safety Report 4860498-1 (Version None)
Quarter: 2005Q4

REPORT INFORMATION
  Report Type: 
  Country: None (occurrence: None)
  Receive Date: 20051219
  Receipt Date: 20051210
  Transmission Date: 20060501
  Serious: Yes (Hospitalization)
  Sender: FDA-Public Use
  Company Number: FI-AVENTIS-200520887GDDC

PATIENT
  Age: 41 Year
  Sex: Male

DRUGS (5)
  1. LANTUS [Suspect]
     Indication: DIABETES MELLITUS INSULIN-DEPENDENT
     Route: 058
  2. HUMALOG [Suspect]
     Indication: DIABETES MELLITUS INSULIN-DEPENDENT
     Route: 058
  3. ALPHAGAN [Suspect]
     Route: 047
     Dates: start: 20051108
  4. BETOPTIC [Suspect]
     Route: 047
     Dates: start: 20051108
  5. RAMIPRIL [Concomitant]
     Indication: HYPERTONIA
     Route: 048

REACTIONS (5)
  - BLOOD GLUCOSE FLUCTUATION [None]
  - BLOOD PRESSURE INCREASED [None]
  - CONVULSION [None]
  - DRUG INTERACTION [None]
  - HYPOGLYCAEMIA [None]
